FAERS Safety Report 8310260-2 (Version None)
Quarter: 2012Q2

REPORT INFORMATION
  Report Type: 
  Country: None (occurrence: None)
  Receive Date: 20120425
  Receipt Date: 20120416
  Transmission Date: 20120825
  Serious: Yes (Other)
  Sender: FDA-Public Use
  Company Number: US-BAYER-2012-035537

PATIENT
  Age: 60 Year
  Sex: Male

DRUGS (2)
  1. NEXAVAR [Suspect]
     Dosage: 400 MG, BID
     Dates: start: 20120413
  2. NEXAVAR [Suspect]
     Indication: HEPATIC NEOPLASM MALIGNANT
     Dosage: UNK
     Dates: start: 20120201, end: 20120218

REACTIONS (4)
  - SPUTUM DISCOLOURED [None]
  - CHEST DISCOMFORT [None]
  - EPISTAXIS [None]
  - BLOOD DISORDER [None]
